FAERS Safety Report 12179875 (Version 1)
Quarter: 2016Q1

REPORT INFORMATION
  Report Type: Report from Study
  Country: US (occurrence: US)
  Receive Date: 20160315
  Receipt Date: 20160315
  Transmission Date: 20160526
  Serious: Yes (Other)
  Sender: FDA-Public Use
  Company Number: US-EMD SERONO-7183064

PATIENT
  Age: 48 Year
  Sex: Female
  Weight: 70 kg

DRUGS (1)
  1. REBIF [Suspect]
     Active Substance: INTERFERON BETA-1A
     Indication: MULTIPLE SCLEROSIS
     Route: 058
     Dates: start: 20070425, end: 20140101

REACTIONS (11)
  - Meniscus injury [Unknown]
  - Neuropathy peripheral [Not Recovered/Not Resolved]
  - Balance disorder [Unknown]
  - Pain in extremity [Not Recovered/Not Resolved]
  - Pulmonary mass [Unknown]
  - Gait disturbance [Unknown]
  - Chills [Not Recovered/Not Resolved]
  - Injection site bruising [Not Recovered/Not Resolved]
  - Coordination abnormal [Unknown]
  - Osteoarthritis [Unknown]
  - Myalgia [Unknown]

NARRATIVE: CASE EVENT DATE: 2010
